FAERS Safety Report 7396672-2 (Version None)
Quarter: 2011Q2

REPORT INFORMATION
  Report Type: 
  Country: None (occurrence: None)
  Receive Date: 20110406
  Receipt Date: 20110401
  Transmission Date: 20111010
  Serious: Yes (Death)
  Sender: FDA-Public Use
  Company Number: PHHY2011BR04914

PATIENT
  Sex: Female
  Weight: 62 kg

DRUGS (6)
  1. METFORMIN [Concomitant]
     Indication: HYPERTENSION
  2. ACETYLSALICYLIC ACID SRT [Concomitant]
     Indication: HYPERTENSION
     Dosage: 1 DF, QD (1 TABLET AFTER LUNCH)
     Route: 048
  3. SYNTHROID [Concomitant]
     Indication: THYROID DISORDER
     Dosage: 1 DF, QD (1 TABLET FASTING IN THE MORNING)
     Route: 048
  4. ACETYLSALICYLIC ACID SRT [Concomitant]
     Indication: PARAESTHESIA
  5. METFORMIN [Concomitant]
     Indication: BLOOD CHOLESTEROL
     Dosage: 1 DF, QD
     Route: 048
  6. DIOVAN [Suspect]
     Indication: DIABETES MELLITUS
     Dosage: 1 DF, BID

REACTIONS (3)
  - DIABETES MELLITUS [None]
  - BLOOD CHOLESTEROL INCREASED [None]
  - HYPERTENSION [None]
